FAERS Safety Report 9661845 (Version 1)
Quarter: 2013Q4

REPORT INFORMATION
  Report Type: Spontaneous
  Country: US (occurrence: US)
  Receive Date: 20131031
  Receipt Date: 20131031
  Transmission Date: 20140711
  Serious: No
  Sender: FDA-Public Use
  Company Number: US-PURDUE-USA-2010-0058389

PATIENT
  Sex: Female

DRUGS (4)
  1. OXYCONTIN (NDA 22-272) [Suspect]
     Indication: SYSTEMIC LUPUS ERYTHEMATOSUS
     Dosage: 10 MG, TID
     Route: 048
     Dates: start: 20101022
  2. OXYCONTIN (NDA 22-272) [Suspect]
     Indication: FIBROMYALGIA
     Dosage: 40 MG, TID
     Dates: start: 20101022
  3. OXYCONTIN (NDA 22-272) [Suspect]
     Indication: OSTEOARTHRITIS
  4. OXYCONTIN (NDA 22-272) [Suspect]
     Indication: RHEUMATOID ARTHRITIS

REACTIONS (7)
  - Balance disorder [Recovered/Resolved]
  - Drug effect increased [Recovered/Resolved]
  - Lethargy [Recovered/Resolved]
  - Dysarthria [Unknown]
  - Somnolence [Not Recovered/Not Resolved]
  - Heart rate increased [Unknown]
  - Dizziness [Unknown]
